FAERS Safety Report 4932259-6 (Version None)
Quarter: 2006Q1

REPORT INFORMATION
  Report Type: 
  Country: None (occurrence: None)
  Receive Date: 20060303
  Receipt Date: 20060216
  Transmission Date: 20060701
  Serious: Yes (Hospitalization, Other)
  Sender: FDA-Public Use
  Company Number: GB-BRISTOL-MYERS SQUIBB COMPANY-13286471

PATIENT
  Age: 20 Year
  Sex: Male
  Weight: 70 kg

DRUGS (3)
  1. ABILIFY [Suspect]
     Indication: SCHIZOPHRENIA
     Route: 048
     Dates: start: 20060204, end: 20060215
  2. DIAZEPAM [Concomitant]
  3. TEMAZEPAM [Concomitant]

REACTIONS (5)
  - ABNORMAL BEHAVIOUR [None]
  - IMPAIRED SELF-CARE [None]
  - POSTURE ABNORMAL [None]
  - PSYCHOTIC DISORDER [None]
  - SELF-INDUCED VOMITING [None]
